FAERS Safety Report 25446033 (Version 2)
Quarter: 2025Q3

REPORT INFORMATION
  Report Type: Spontaneous
  Country: EU (occurrence: EU)
  Receive Date: 20250617
  Receipt Date: 20250828
  Transmission Date: 20251021
  Serious: Yes (Other)
  Sender: MYLAN
  Company Number: None

PATIENT
  Age: 56 Year
  Sex: Female
  Weight: 36 kg

DRUGS (12)
  1. VENLAFAXINE [Suspect]
     Active Substance: VENLAFAXINE HYDROCHLORIDE
     Indication: Depression
     Dates: start: 20250305, end: 20250516
  2. VENLAFAXINE [Suspect]
     Active Substance: VENLAFAXINE HYDROCHLORIDE
     Route: 048
     Dates: start: 20250305, end: 20250516
  3. VENLAFAXINE [Suspect]
     Active Substance: VENLAFAXINE HYDROCHLORIDE
     Route: 048
     Dates: start: 20250305, end: 20250516
  4. VENLAFAXINE [Suspect]
     Active Substance: VENLAFAXINE HYDROCHLORIDE
     Dates: start: 20250305, end: 20250516
  5. CLOMIPRAMINE HYDROCHLORIDE [Suspect]
     Active Substance: CLOMIPRAMINE HYDROCHLORIDE
     Indication: Depression
  6. CLOMIPRAMINE HYDROCHLORIDE [Suspect]
     Active Substance: CLOMIPRAMINE HYDROCHLORIDE
     Route: 048
  7. CLOMIPRAMINE HYDROCHLORIDE [Suspect]
     Active Substance: CLOMIPRAMINE HYDROCHLORIDE
     Route: 048
  8. CLOMIPRAMINE HYDROCHLORIDE [Suspect]
     Active Substance: CLOMIPRAMINE HYDROCHLORIDE
  9. CLOMIPRAMINE HYDROCHLORIDE [Suspect]
     Active Substance: CLOMIPRAMINE HYDROCHLORIDE
     Indication: Depression
  10. CLOMIPRAMINE HYDROCHLORIDE [Suspect]
     Active Substance: CLOMIPRAMINE HYDROCHLORIDE
     Route: 042
  11. CLOMIPRAMINE HYDROCHLORIDE [Suspect]
     Active Substance: CLOMIPRAMINE HYDROCHLORIDE
     Route: 042
  12. CLOMIPRAMINE HYDROCHLORIDE [Suspect]
     Active Substance: CLOMIPRAMINE HYDROCHLORIDE

REACTIONS (1)
  - Hepatic cytolysis [Recovering/Resolving]

NARRATIVE: CASE EVENT DATE: 20250507
